FAERS Safety Report 4985673-7 (Version None)
Quarter: 2006Q2

REPORT INFORMATION
  Report Type: 
  Country: None (occurrence: None)
  Receive Date: 20060428
  Receipt Date: 20050916
  Transmission Date: 20061013
  Serious: No
  Sender: FDA-Public Use
  Company Number: US-GLAXOSMITHKLINE-A0574527A

PATIENT
  Sex: Female

DRUGS (2)
  1. ZOFRAN [Suspect]
     Route: 065
     Dates: start: 20050916
  2. UNKNOWN [Concomitant]

REACTIONS (1)
  - AGITATION [None]
